FAERS Safety Report 24644553 (Version 3)
Quarter: 2025Q1

REPORT INFORMATION
  Report Type: Spontaneous
  Country: JP (occurrence: JP)
  Receive Date: 20241121
  Receipt Date: 20250208
  Transmission Date: 20250409
  Serious: Yes (Hospitalization)
  Sender: ABBVIE
  Company Number: JP-ABBVIE-6007682

PATIENT
  Age: 42 Year
  Sex: Male
  Weight: 76 kg

DRUGS (10)
  1. VENCLEXTA [Suspect]
     Active Substance: VENETOCLAX
     Indication: Acute myeloid leukaemia
     Dosage: 200 MILLIGRAM
     Route: 048
     Dates: start: 20241002, end: 20241002
  2. VENCLEXTA [Suspect]
     Active Substance: VENETOCLAX
     Indication: Acute myeloid leukaemia
     Dosage: 400 MILLIGRAM
     Route: 048
     Dates: start: 20241003, end: 20241013
  3. VENCLEXTA [Suspect]
     Active Substance: VENETOCLAX
     Indication: Acute myeloid leukaemia
     Dosage: 100 MILLIGRAM
     Route: 048
     Dates: start: 20241001, end: 20241001
  4. VANCOMYCIN HYDROCHLORIDE [Suspect]
     Active Substance: VANCOMYCIN HYDROCHLORIDE
     Indication: Febrile neutropenia
     Dosage: 2 GRAM
     Route: 041
     Dates: start: 20240923, end: 20241004
  5. AZACITIDINE [Concomitant]
     Active Substance: AZACITIDINE
     Indication: Acute myeloid leukaemia
  6. MICAFUNGIN SODIUM [Concomitant]
     Active Substance: MICAFUNGIN SODIUM
     Indication: Antifungal prophylaxis
     Dosage: 50 MILLIGRAM
     Route: 041
     Dates: start: 20241001, end: 20241009
  7. SULFAMETHOXAZOLE\TRIMETHOPRIM [Suspect]
     Active Substance: SULFAMETHOXAZOLE\TRIMETHOPRIM
     Indication: Product used for unknown indication
  8. FEBUXOSTAT [Concomitant]
     Active Substance: FEBUXOSTAT
     Indication: Hyperuricaemia
     Dosage: 40 MILLIGRAM
     Route: 048
     Dates: start: 20240929, end: 20241015
  9. NAFAMOSTAT MESYLATE [Concomitant]
     Active Substance: NAFAMOSTAT MESYLATE
     Indication: Disseminated intravascular coagulation
     Dosage: 200 MILLIGRAM
     Route: 041
     Dates: start: 20240930, end: 20241007
  10. MEROPENEM [Suspect]
     Active Substance: MEROPENEM
     Indication: Febrile neutropenia
     Route: 041
     Dates: start: 20240915, end: 20241015

REACTIONS (1)
  - Drug eruption [Recovered/Resolved]

NARRATIVE: CASE EVENT DATE: 20241003
